FAERS Safety Report 10257396 (Version 1)
Quarter: 2014Q2

REPORT INFORMATION
  Report Type: Spontaneous
  Country: US (occurrence: US)
  Receive Date: 20140625
  Receipt Date: 20140625
  Transmission Date: 20141212
  Serious: No
  Sender: FDA-Public Use
  Company Number: US-BAYER-2014-086970

PATIENT
  Age: 46 Year
  Sex: Female

DRUGS (1)
  1. CIPRO [Suspect]
     Indication: VAGINAL INFECTION
     Dosage: 2 PILLS DAILY BY MOUTH DOSE NOT PROVIDED
     Dates: start: 20140308, end: 20140317

REACTIONS (10)
  - Unevaluable event [None]
  - Nightmare [None]
  - Headache [None]
  - Paraesthesia [None]
  - Muscle contractions involuntary [None]
  - Insomnia [None]
  - Anxiety [None]
  - Decreased appetite [None]
  - Blood pressure increased [None]
  - Adverse event [None]
